FAERS Safety Report 16824255 (Version 1)
Quarter: 2019Q3

REPORT INFORMATION
  Report Type: Spontaneous
  Country: KR (occurrence: KR)
  Receive Date: 20190918
  Receipt Date: 20190918
  Transmission Date: 20191005
  Serious: Yes (Other)
  Sender: FDA-Public Use
  Company Number: PHHY2019KR163552

PATIENT
  Age: 59 Year
  Sex: Female

DRUGS (8)
  1. ACETAMINOPHEN. [Concomitant]
     Active Substance: ACETAMINOPHEN
     Indication: BACK PAIN
     Dosage: 325 MG, UNK
     Route: 065
  2. TRAMADOL. [Concomitant]
     Active Substance: TRAMADOL
     Indication: BACK PAIN
     Dosage: 37.5 MG, UNK
     Route: 065
  3. PIPRINHYDRINATE [Concomitant]
     Indication: PRODUCT USED FOR UNKNOWN INDICATION
     Route: 065
  4. CARBAMAZEPINE. [Suspect]
     Active Substance: CARBAMAZEPINE
     Indication: BACK PAIN
     Dosage: 100 MG, UNK
     Route: 065
  5. CIMETIDINE [Concomitant]
     Active Substance: CIMETIDINE
     Indication: PRODUCT USED FOR UNKNOWN INDICATION
     Dosage: 200 MG, UNK
     Route: 065
  6. TIBOLONE [Concomitant]
     Active Substance: TIBOLONE
     Indication: MENOPAUSAL SYMPTOMS
     Route: 065
  7. LERCANIDIPINE [Concomitant]
     Active Substance: LERCANIDIPINE
     Indication: HYPERTENSION
     Route: 065
  8. ACECLOFENAC [Concomitant]
     Active Substance: ACECLOFENAC
     Indication: BACK PAIN
     Dosage: 100 MG, UNK
     Route: 065

REACTIONS (8)
  - Oral mucosa erosion [Recovered/Resolved]
  - Rash erythematous [Recovered/Resolved]
  - Conjunctival hyperaemia [Recovered/Resolved]
  - Stevens-Johnson syndrome [Recovered/Resolved]
  - Pruritus [Recovered/Resolved]
  - Conjunctivitis [Recovered/Resolved]
  - Erythema multiforme [Recovered/Resolved]
  - Product use in unapproved indication [Unknown]
